APPROVED DRUG PRODUCT: METHOTREXATE SODIUM PRESERVATIVE FREE
Active Ingredient: METHOTREXATE SODIUM
Strength: EQ 100MG BASE/4ML (EQ 25MG BASE/ML)
Dosage Form/Route: INJECTABLE;INJECTION
Application: A040843 | Product #003 | TE Code: AP
Applicant: PHARMACHEMIE BV
Approved: Feb 27, 2012 | RLD: No | RS: No | Type: RX